FAERS Safety Report 17905824 (Version 1)
Quarter: 2020Q2

REPORT INFORMATION
  Report Type: Spontaneous
  Country: GB (occurrence: VN)
  Receive Date: 20200617
  Receipt Date: 20200617
  Transmission Date: 20200714
  Serious: Yes (Other)
  Sender: FDA-Public Use
  Company Number: VN-ASTELLAS-2020US020410

PATIENT
  Sex: Male

DRUGS (2)
  1. TARCEVA [Suspect]
     Active Substance: ERLOTINIB HYDROCHLORIDE
     Indication: NON-SMALL CELL LUNG CANCER STAGE IV
     Dosage: UNK, UNKNOWN FREQ.
     Route: 048
     Dates: start: 20190720
  2. OSIMERTINIB MESYLATE. [Concomitant]
     Active Substance: OSIMERTINIB MESYLATE
     Indication: NON-SMALL CELL LUNG CANCER STAGE IV
     Dosage: UNK, UNKNOWN FREQ.
     Route: 065

REACTIONS (7)
  - Sluggishness [Unknown]
  - Back pain [Unknown]
  - Fatigue [Unknown]
  - Malignant neoplasm progression [Unknown]
  - Cough [Unknown]
  - Osteoporosis [Unknown]
  - Drug resistance [Unknown]

NARRATIVE: CASE EVENT DATE: 202005
